FAERS Safety Report 18266554 (Version 1)
Quarter: 2020Q3

REPORT INFORMATION
  Report Type: Spontaneous
  Country: US (occurrence: US)
  Receive Date: 20200914
  Receipt Date: 20200914
  Transmission Date: 20201103
  Serious: Yes (Death)
  Sender: FDA-Public Use
  Company Number: None

PATIENT
  Age: 59 Year
  Sex: Female
  Weight: 100.7 kg

DRUGS (2)
  1. KEYTRUDA [Suspect]
     Active Substance: PEMBROLIZUMAB
     Indication: LUNG NEOPLASM MALIGNANT
     Dosage: ?          OTHER DOSE:100MG/4ML;OTHER FREQUENCY:Q21 DAYS;?
     Route: 042
     Dates: start: 20200701, end: 20200827
  2. ALIMTA [Suspect]
     Active Substance: PEMETREXED DISODIUM
     Indication: LUNG NEOPLASM MALIGNANT
     Dosage: ?          OTHER FREQUENCY:Q 21 DAYS;?
     Route: 042
     Dates: start: 20200701, end: 20200827

REACTIONS (1)
  - Death [None]

NARRATIVE: CASE EVENT DATE: 20200911
